FAERS Safety Report 21369624 (Version 2)
Quarter: 2022Q3

REPORT INFORMATION
  Report Type: Spontaneous
  Country: US (occurrence: US)
  Receive Date: 20220923
  Receipt Date: 20220929
  Transmission Date: 20221027
  Serious: Yes (Hospitalization, Other)
  Sender: FDA-Public Use
  Company Number: US-UNITED THERAPEUTICS-UNT-2022-020949

PATIENT
  Age: 59 Year
  Sex: Female

DRUGS (4)
  1. REMODULIN [Suspect]
     Active Substance: TREPROSTINIL
     Indication: Pulmonary arterial hypertension
     Dosage: UNK, CONTINUING
     Route: 041
     Dates: start: 20220319
  2. REMODULIN [Suspect]
     Active Substance: TREPROSTINIL
     Dosage: 0.039 ?G/KG, CONTINUING [PUMP RATE 40 ML/24HR (USING 7 ML REMODULIN 1 MG/ML EVERY 48 HOURS)]
     Route: 041
     Dates: start: 20220722
  3. REMODULIN [Suspect]
     Active Substance: TREPROSTINIL
     Dosage: 0.042 ?G/KG, CONTINUING [PUMP RATE 43 ML/24HR (USING 7ML REMODULIN 1 MG/ML EVERY 48 HOURS)]
     Route: 041
     Dates: start: 20220822
  4. REMODULIN [Suspect]
     Active Substance: TREPROSTINIL
     Dosage: 0.049 ?G/KG, CONTINUING [PUMP RATE 44ML/24 HR (USING 8 ML OF REMODULIN 1 MG/ML AND 92 ML DILUENT)]
     Route: 041
     Dates: start: 20220909

REACTIONS (7)
  - Dyspnoea [Unknown]
  - Hypoxia [Unknown]
  - Syncope [Recovered/Resolved]
  - Blindness transient [Recovering/Resolving]
  - Hypokinesia [Recovering/Resolving]
  - Pain in jaw [Unknown]
  - Intentional product use issue [Unknown]

NARRATIVE: CASE EVENT DATE: 20220901
